FAERS Safety Report 6750186-9 (Version None)
Quarter: 2010Q2

REPORT INFORMATION
  Report Type: 
  Country: None (occurrence: None)
  Receive Date: 20100601
  Receipt Date: 20100521
  Transmission Date: 20101027
  Serious: Yes (Life-Threatening, Hospitalization, Other)
  Sender: FDA-Public Use
  Company Number: JP-PFIZER INC-2010046932

PATIENT
  Age: 70 Year
  Sex: Male
  Weight: 52 kg

DRUGS (3)
  1. SUNITINIB MALATE [Suspect]
     Indication: GASTROINTESTINAL STROMAL TUMOUR
     Dosage: TDD 50 MG
     Route: 048
     Dates: start: 20100323
  2. CANDESARTAN CILEXETIL [Concomitant]
     Indication: HYPERTENSION
     Dosage: UNK
     Route: 048
     Dates: start: 20080330
  3. NAUZELIN [Concomitant]
     Indication: INSOMNIA
     Dosage: UNK
     Route: 048
     Dates: start: 20080330

REACTIONS (4)
  - HAEMATURIA [None]
  - LEUKOENCEPHALOPATHY [None]
  - PYREXIA [None]
  - VENA CAVA THROMBOSIS [None]
